FAERS Safety Report 11468084 (Version 2)
Quarter: 2015Q3

REPORT INFORMATION
  Report Type: Spontaneous
  Country: PH (occurrence: PH)
  Receive Date: 20150908
  Receipt Date: 20150923
  Transmission Date: 20151125
  Serious: Yes (Death, Hospitalization)
  Sender: FDA-Public Use
  Company Number: PH-ASTELLAS-2015US032123

PATIENT
  Age: 74 Year
  Sex: Male

DRUGS (1)
  1. XTANDI [Suspect]
     Active Substance: ENZALUTAMIDE
     Indication: PROSTATE CANCER
     Dosage: 160 MG (4 CAPS X 40MG), ONCE DAILY
     Route: 048
     Dates: start: 20150825, end: 20150827

REACTIONS (2)
  - Cardiac failure [Fatal]
  - Muscle twitching [Unknown]

NARRATIVE: CASE EVENT DATE: 20150827
